FAERS Safety Report 6374418-4 (Version None)
Quarter: 2009Q3

REPORT INFORMATION
  Report Type: 
  Country: None (occurrence: None)
  Receive Date: 20090915
  Receipt Date: 20090915
  Transmission Date: 20100115
  Serious: Yes (Hospitalization)
  Sender: FDA-Public Use
  Company Number: None

PATIENT
  Age: 60 Year
  Sex: Male
  Weight: 86.8 kg

DRUGS (1)
  1. NORTRIPTYLINE HCL [Suspect]
     Dosage: 25 MG HS PO
     Route: 048
     Dates: start: 20090827, end: 20090906

REACTIONS (1)
  - DYSKINESIA [None]
